FAERS Safety Report 6425203-6 (Version None)
Quarter: 2009Q4

REPORT INFORMATION
  Report Type: 
  Country: None (occurrence: None)
  Receive Date: 20091102
  Receipt Date: 20091102
  Transmission Date: 20100525
  Serious: Yes (Hospitalization)
  Sender: FDA-Public Use
  Company Number: None

PATIENT
  Sex: Female
  Weight: 43.7 kg

DRUGS (2)
  1. CISPLATIN [Suspect]
     Dosage: 70 MG
     Dates: end: 20091022
  2. TAXOL [Suspect]
     Dosage: 243 MG
     Dates: end: 20091022

REACTIONS (4)
  - FEMALE GENITAL TRACT FISTULA [None]
  - GENITAL DISCOMFORT [None]
  - PAIN [None]
  - PNEUMOTHORAX [None]
